FAERS Safety Report 5582802-1 (Version None)
Quarter: 2007Q4

REPORT INFORMATION
  Report Type: 
  Country: None (occurrence: None)
  Receive Date: 20071231
  Receipt Date: 20071227
  Transmission Date: 20080405
  Serious: Yes (Death, Hospitalization)
  Sender: FDA-Public Use
  Company Number: 2007SP011624

PATIENT
  Age: 64 Year
  Sex: Female

DRUGS (10)
  1. INTRON A [Suspect]
     Indication: HEPATITIS C
     Dosage: 6 MIU; IM : 6 MIU;TIW;IM : 6 MIU;TIW;IM
     Route: 030
     Dates: start: 20060919, end: 20060924
  2. INTRON A [Suspect]
     Indication: HEPATITIS C
     Dosage: 6 MIU; IM : 6 MIU;TIW;IM : 6 MIU;TIW;IM
     Route: 030
     Dates: start: 20060926, end: 20061227
  3. INTRON A [Suspect]
     Indication: HEPATITIS C
     Dosage: 6 MIU; IM : 6 MIU;TIW;IM : 6 MIU;TIW;IM
     Route: 030
     Dates: start: 20070216, end: 20070528
  4. REBETOL [Suspect]
     Indication: HEPATITIS C
     Dosage: 600 MG;QD;PO : 400 MG;QD;PO : 400 MG;QD;PO : 200 MG;QD;PO
     Route: 048
     Dates: start: 20060919, end: 20061016
  5. REBETOL [Suspect]
     Indication: HEPATITIS C
     Dosage: 600 MG;QD;PO : 400 MG;QD;PO : 400 MG;QD;PO : 200 MG;QD;PO
     Route: 048
     Dates: start: 20061017, end: 20061228
  6. REBETOL [Suspect]
     Indication: HEPATITIS C
     Dosage: 600 MG;QD;PO : 400 MG;QD;PO : 400 MG;QD;PO : 200 MG;QD;PO
     Route: 048
     Dates: start: 20070216, end: 20070405
  7. REBETOL [Suspect]
     Indication: HEPATITIS C
     Dosage: 600 MG;QD;PO : 400 MG;QD;PO : 400 MG;QD;PO : 200 MG;QD;PO
     Route: 048
     Dates: start: 20070406, end: 20070528
  8. CONIEL [Concomitant]
  9. URSO 250 [Concomitant]
  10. GLYCYRON [Concomitant]

REACTIONS (1)
  - CEREBRAL HAEMORRHAGE [None]
